FAERS Safety Report 4454808-7 (Version None)
Quarter: 2004Q3

REPORT INFORMATION
  Report Type: 
  Country: None (occurrence: None)
  Receive Date: 20040921
  Receipt Date: 20040913
  Transmission Date: 20050211
  Serious: Yes (Other)
  Sender: FDA-Public Use
  Company Number: PHFR2004GB03503

PATIENT
  Age: 71 Year
  Sex: Male

DRUGS (8)
  1. TERBINAFINE HCL [Suspect]
     Indication: ONYCHOMYCOSIS
     Dosage: 250 MG, QD
     Route: 048
     Dates: start: 20010925
  2. ASPIRIN [Concomitant]
     Route: 065
     Dates: start: 19980817
  3. HYPROMELLOSE [Concomitant]
     Dosage: AS DIRECTED
     Route: 065
     Dates: start: 19980817
  4. IBUPROFEN [Concomitant]
     Route: 065
     Dates: start: 19980817
  5. LANSOPRAZOLE [Concomitant]
     Dosage: 1 UKN, QD
     Route: 065
     Dates: start: 19980817
  6. PULMICORT [Concomitant]
     Dosage: AS DIRECTED
     Route: 065
     Dates: start: 19980817
  7. ALBUTEROL [Concomitant]
     Dosage: 2 UKN, QID
     Route: 065
     Dates: start: 19991109
  8. ADIZEM-XL [Concomitant]
     Dosage: 1 UKN, QD
     Route: 065
     Dates: start: 20000608

REACTIONS (1)
  - HERPES ZOSTER [None]
